FAERS Safety Report 18385857 (Version 1)
Quarter: 2020Q4

REPORT INFORMATION
  Report Type: Spontaneous
  Country: US (occurrence: US)
  Receive Date: 20201015
  Receipt Date: 20201015
  Transmission Date: 20210114
  Serious: No
  Sender: FDA-Public Use
  Company Number: US-TEVA-2020-US-1834650

PATIENT
  Sex: Female

DRUGS (4)
  1. DAILY VITE [Concomitant]
     Active Substance: VITAMINS
  2. AUSTEDO [Suspect]
     Active Substance: DEUTETRABENAZINE
     Indication: TARDIVE DYSKINESIA
     Dosage: 18 MG, TWICE A DAY
     Route: 048
  3. DUPIXENT [Concomitant]
     Active Substance: DUPILUMAB
  4. VITAMIN B6 [Concomitant]
     Active Substance: PYRIDOXINE HYDROCHLORIDE

REACTIONS (1)
  - Somnolence [Not Recovered/Not Resolved]
